FAERS Safety Report 11166117 (Version 1)
Quarter: 2015Q2

REPORT INFORMATION
  Report Type: Report from Study
  Country: JP (occurrence: JP)
  Receive Date: 20150605
  Receipt Date: 20150605
  Transmission Date: 20150821
  Serious: Yes (Other)
  Sender: FDA-Public Use
  Company Number: PHHY2013JP023670

PATIENT
  Age: 28 Year
  Sex: Male

DRUGS (43)
  1. CLOZARIL [Suspect]
     Active Substance: CLOZAPINE
     Indication: SCHIZOPHRENIA, PARANOID TYPE
     Dosage: 12.5 MG, QD
     Route: 048
     Dates: start: 20110803, end: 20110803
  2. CLOZARIL [Suspect]
     Active Substance: CLOZAPINE
     Dosage: 50 MG, QD
     Route: 048
     Dates: start: 20110807, end: 20110809
  3. CLOZARIL [Suspect]
     Active Substance: CLOZAPINE
     Dosage: 375 MG, QD
     Route: 048
     Dates: start: 20111116, end: 20111206
  4. CLOZARIL [Suspect]
     Active Substance: CLOZAPINE
     Dosage: 400 MG, QD
     Route: 048
     Dates: start: 20111207, end: 20120131
  5. CLOZARIL [Suspect]
     Active Substance: CLOZAPINE
     Dosage: 425 MG, QD
     Route: 048
     Dates: start: 20120201, end: 20120207
  6. DEPAKENE [Concomitant]
     Active Substance: VALPROIC ACID
     Indication: PROPHYLAXIS
     Dosage: 200 MG
     Route: 048
     Dates: start: 20120229
  7. CLOZARIL [Suspect]
     Active Substance: CLOZAPINE
     Dosage: 25 MG, QD
     Route: 048
     Dates: start: 20110804, end: 20110806
  8. CLOZARIL [Suspect]
     Active Substance: CLOZAPINE
     Dosage: 200 MG, QD
     Route: 048
     Dates: start: 20110902, end: 20110905
  9. CLOZARIL [Suspect]
     Active Substance: CLOZAPINE
     Dosage: 275 MG, QD
     Route: 048
     Dates: start: 20110915, end: 20110921
  10. CLOZARIL [Suspect]
     Active Substance: CLOZAPINE
     Dosage: 300 MG, QD
     Route: 048
     Dates: start: 20110922, end: 20110928
  11. CLOZARIL [Suspect]
     Active Substance: CLOZAPINE
     Dosage: 450 MG, QD
     Route: 048
     Dates: start: 20120208, end: 20120214
  12. ZOPICOOL [Concomitant]
     Active Substance: ZOPICLONE
     Dosage: 7.5 MG, QD
     Route: 048
     Dates: start: 20110905, end: 20110911
  13. RIVOTRIL [Concomitant]
     Active Substance: CLONAZEPAM
     Dosage: 0.5 MG, QD
     Route: 048
  14. CLOZARIL [Suspect]
     Active Substance: CLOZAPINE
     Dosage: 325 MG, QD
     Route: 048
     Dates: start: 20110929, end: 20111025
  15. CLOZARIL [Suspect]
     Active Substance: CLOZAPINE
     Dosage: 350 MG, QD
     Route: 048
     Dates: start: 20111026, end: 20111115
  16. CLOZARIL [Suspect]
     Active Substance: CLOZAPINE
     Dosage: 500 MG, QD
     Route: 048
     Dates: start: 20120222, end: 20120228
  17. ZOPICOOL [Concomitant]
     Active Substance: ZOPICLONE
     Indication: SCHIZOPHRENIA, PARANOID TYPE
     Dosage: 7.5 MG, QD
     Route: 048
     Dates: start: 20110819, end: 20110825
  18. RIVOTRIL [Concomitant]
     Active Substance: CLONAZEPAM
     Indication: PROPHYLAXIS
     Dosage: 1 MG
     Route: 048
     Dates: start: 20111121
  19. CLOZARIL [Suspect]
     Active Substance: CLOZAPINE
     Dosage: 150 MG, QD
     Route: 048
     Dates: start: 20110820, end: 20110824
  20. CLOZARIL [Suspect]
     Active Substance: CLOZAPINE
     Dosage: 575 MG, QD
     Route: 048
     Dates: start: 20120502, end: 20120515
  21. CLOZARIL [Suspect]
     Active Substance: CLOZAPINE
     Dosage: 600 MG, QD
     Route: 048
     Dates: start: 20120516, end: 20130218
  22. FLUNITRAZEPAM [Concomitant]
     Active Substance: FLUNITRAZEPAM
     Indication: SCHIZOPHRENIA, PARANOID TYPE
     Dosage: 2 MG, QD
     Route: 048
     Dates: end: 20110815
  23. VENA [Concomitant]
     Active Substance: DIPHENHYDRAMINE HYDROCHLORIDE
     Indication: SCHIZOPHRENIA, PARANOID TYPE
     Dosage: 20 MG, QD
     Route: 048
     Dates: start: 20110806, end: 20110814
  24. VENA [Concomitant]
     Active Substance: DIPHENHYDRAMINE HYDROCHLORIDE
     Dosage: 20 MG, QD
     Route: 048
     Dates: start: 20110924
  25. CLOZARIL [Suspect]
     Active Substance: CLOZAPINE
     Dosage: 100 MG, QD
     Route: 048
     Dates: start: 20110813, end: 20110815
  26. CLOZARIL [Suspect]
     Active Substance: CLOZAPINE
     Dosage: 125 MG, QD
     Route: 048
     Dates: start: 20110816, end: 20110819
  27. CLOZARIL [Suspect]
     Active Substance: CLOZAPINE
     Dosage: 550 MG, QD
     Route: 048
     Dates: start: 20130319
  28. LEVOTOMIN [Concomitant]
     Active Substance: LEVOMEPROMAZINE
     Indication: SCHIZOPHRENIA, PARANOID TYPE
     Dosage: 5 MG, QD
     Route: 048
     Dates: start: 20110806, end: 20110814
  29. RONFLEMAN [Concomitant]
     Indication: SCHIZOPHRENIA, PARANOID TYPE
     Dosage: 0.25 MG, QD
     Route: 048
     Dates: start: 20111026, end: 20111129
  30. CLOZARIL [Suspect]
     Active Substance: CLOZAPINE
     Dosage: 175 MG, QD
     Route: 048
     Dates: start: 20110825, end: 20110901
  31. CLOZARIL [Suspect]
     Active Substance: CLOZAPINE
     Dosage: 225 MG, QD
     Route: 048
     Dates: start: 20110906, end: 20110909
  32. CLOZARIL [Suspect]
     Active Substance: CLOZAPINE
     Dosage: 250 MG, QD
     Route: 048
     Dates: start: 20110910, end: 20110914
  33. CLOZARIL [Suspect]
     Active Substance: CLOZAPINE
     Dosage: 475 MG, QD
     Route: 048
     Dates: start: 20120215, end: 20120221
  34. CLOZARIL [Suspect]
     Active Substance: CLOZAPINE
     Dosage: 550 MG, QD
     Route: 048
     Dates: start: 20120314, end: 20120501
  35. CLOZARIL [Suspect]
     Active Substance: CLOZAPINE
     Dosage: 500 MG, QD
     Route: 048
     Dates: start: 20130219, end: 20130318
  36. RONFLEMAN [Concomitant]
     Dosage: 0.25 MG, QD
     Route: 048
     Dates: start: 20130514
  37. CLOZARIL [Suspect]
     Active Substance: CLOZAPINE
     Dosage: 525 MG, QD
     Route: 048
     Dates: start: 20120229, end: 20120313
  38. ZOPICOOL [Concomitant]
     Active Substance: ZOPICLONE
     Dosage: 7.5 MG, QD
     Route: 048
     Dates: start: 20110930, end: 20111108
  39. CLOZARIL [Suspect]
     Active Substance: CLOZAPINE
     Dosage: 75 MG, QD
     Route: 048
     Dates: start: 20110810, end: 20110812
  40. FLUNITRAZEPAM [Concomitant]
     Active Substance: FLUNITRAZEPAM
     Dosage: 1 MG, QD
     Route: 048
  41. VENA [Concomitant]
     Active Substance: DIPHENHYDRAMINE HYDROCHLORIDE
     Dosage: 20 MG, QD
     Route: 048
     Dates: start: 20110914, end: 20110920
  42. ZOPICOOL [Concomitant]
     Active Substance: ZOPICLONE
     Dosage: 7.5 MG, QD
     Route: 048
     Dates: start: 20110920, end: 20110926
  43. DEPAKENE [Concomitant]
     Active Substance: VALPROIC ACID
     Dosage: 600 MG
     Route: 048

REACTIONS (13)
  - Constipation [Recovering/Resolving]
  - Generalised tonic-clonic seizure [Recovering/Resolving]
  - Haemoglobin decreased [Recovered/Resolved]
  - Blood glucose increased [Recovered/Resolved]
  - Blood glucose increased [Not Recovered/Not Resolved]
  - Dizziness [Recovered/Resolved]
  - Glucose tolerance impaired [Recovered/Resolved]
  - Constipation [Recovered/Resolved]
  - Anxiety [Recovered/Resolved]
  - Insomnia [Not Recovered/Not Resolved]
  - Glycosylated haemoglobin increased [Recovered/Resolved]
  - Gastritis [Recovered/Resolved]
  - Salivary hypersecretion [Not Recovered/Not Resolved]

NARRATIVE: CASE EVENT DATE: 20110806
